FAERS Safety Report 4977257-1 (Version None)
Quarter: 2006Q2

REPORT INFORMATION
  Report Type: 
  Country: None (occurrence: None)
  Receive Date: 20060419
  Receipt Date: 20040224
  Transmission Date: 20061013
  Serious: Yes (Death, Hospitalization)
  Sender: FDA-Public Use
  Company Number: US-MERCK-0402USA01838

PATIENT
  Age: 73 Year
  Sex: Female
  Weight: 82 kg

DRUGS (14)
  1. VIOXX [Suspect]
     Indication: ARTHRITIS
     Route: 048
     Dates: start: 20020111, end: 20030310
  2. VIOXX [Suspect]
     Route: 048
     Dates: start: 20000110
  3. VIOXX [Suspect]
     Route: 048
     Dates: start: 20020710, end: 20020701
  4. VIOXX [Suspect]
     Route: 048
     Dates: start: 20000828, end: 20030220
  5. POTASSIUM CHLORIDE [Concomitant]
     Route: 048
  6. ALDOMET [Concomitant]
     Route: 048
  7. COLCHICINE [Concomitant]
     Route: 048
  8. CLORPRES [Concomitant]
     Route: 048
  9. SYNTHROID [Concomitant]
     Route: 048
  10. MAGNESIUM SULFATE [Concomitant]
     Route: 048
  11. PREMARIN [Concomitant]
     Route: 048
  12. ALLEGRA [Concomitant]
     Route: 065
  13. ACETAMINOPHEN AND CODEINE [Concomitant]
     Route: 065
  14. LOTREL [Concomitant]
     Route: 065

REACTIONS (21)
  - ANXIETY [None]
  - BLOOD PRESSURE FLUCTUATION [None]
  - BUNDLE BRANCH BLOCK RIGHT [None]
  - CARDIAC ARREST [None]
  - CHONDROCALCINOSIS PYROPHOSPHATE [None]
  - COLD SWEAT [None]
  - CYANOSIS [None]
  - ERYTHEMA [None]
  - HEART RATE IRREGULAR [None]
  - HYPERTENSION [None]
  - HYPOMAGNESAEMIA [None]
  - HYPOTHYROIDISM [None]
  - MYOCARDIAL INFARCTION [None]
  - OEDEMA PERIPHERAL [None]
  - OSTEOPOROSIS [None]
  - RESTLESSNESS [None]
  - RHINITIS ALLERGIC [None]
  - SINUS TACHYCARDIA [None]
  - SWELLING FACE [None]
  - VENTRICULAR EXTRASYSTOLES [None]
  - VENTRICULAR FIBRILLATION [None]
